FAERS Safety Report 5571175-6 (Version None)
Quarter: 2007Q4

REPORT INFORMATION
  Report Type: 
  Country: None (occurrence: None)
  Receive Date: 20071221
  Receipt Date: 20061218
  Transmission Date: 20080405
  Serious: No
  Sender: FDA-Public Use
  Company Number: A0632169A

PATIENT
  Age: 7 Year
  Sex: Male

DRUGS (3)
  1. FLOVENT [Suspect]
     Indication: DRUG USE FOR UNKNOWN INDICATION
     Route: 055
  2. SINGULAIR [Concomitant]
     Route: 048
  3. ALBUTEROL [Concomitant]
     Route: 055

REACTIONS (2)
  - ADVERSE EVENT [None]
  - COUGH [None]
